FAERS Safety Report 8987288 (Version 1)
Quarter: 2012Q4

REPORT INFORMATION
  Report Type: 
  Country: MX (occurrence: MX)
  Receive Date: 20121226
  Receipt Date: 20121226
  Transmission Date: 20130627
  Serious: Yes (Other)
  Sender: FDA-Public Use
  Company Number: MX-ROCHE-1173426

PATIENT
  Sex: Male
  Weight: 86 kg

DRUGS (6)
  1. MABTHERA [Suspect]
     Indication: CHRONIC LYMPHOCYTIC LEUKAEMIA
     Route: 042
     Dates: start: 20121219
  2. MABTHERA [Suspect]
     Route: 042
  3. REVLIMID [Concomitant]
     Indication: CHRONIC LYMPHOCYTIC LEUKAEMIA
     Route: 048
     Dates: start: 20121219
  4. CHLOR-TRIMETON [Concomitant]
     Indication: PREMEDICATION
     Route: 042
     Dates: start: 20121219
  5. ACETAMINOPHEN [Concomitant]
     Indication: PREMEDICATION
     Route: 042
     Dates: start: 20121219
  6. HYDROCORTISONE [Concomitant]
     Indication: PREMEDICATION
     Route: 042
     Dates: start: 20121219

REACTIONS (2)
  - Anaphylactic reaction [Recovered/Resolved]
  - Suspected counterfeit product [Unknown]
